FAERS Safety Report 6704534-6 (Version None)
Quarter: 2010Q2

REPORT INFORMATION
  Report Type: 
  Country: None (occurrence: None)
  Receive Date: 20100430
  Receipt Date: 20100421
  Transmission Date: 20101027
  Serious: Yes (Other)
  Sender: FDA-Public Use
  Company Number: PHHY2010US20683

PATIENT
  Age: 63 Year
  Sex: Female

DRUGS (4)
  1. RECLAST [Suspect]
     Indication: OSTEOPOROSIS
     Dosage: 2.5 MG
     Route: 042
     Dates: start: 20040901, end: 20100201
  2. ASPIRIN [Concomitant]
     Indication: CARDIAC DISORDER
     Dosage: 8 MG, UNK
  3. M.V.I. [Concomitant]
  4. TRAZODONE HCL [Concomitant]
     Indication: DEPRESSION
     Dosage: 50 MG, UNK

REACTIONS (2)
  - GAMMOPATHY [None]
  - HYPERGAMMAGLOBULINAEMIA BENIGN MONOCLONAL [None]
